FAERS Safety Report 6632685-3 (Version None)
Quarter: 2010Q1

REPORT INFORMATION
  Report Type: 
  Country: None (occurrence: None)
  Receive Date: 20100312
  Receipt Date: 20100305
  Transmission Date: 20100710
  Serious: Yes (Life-Threatening, Hospitalization, Other)
  Sender: FDA-Public Use
  Company Number: US-ELI_LILLY_AND_COMPANY-US200812005658

PATIENT
  Sex: Female
  Weight: 80.726 kg

DRUGS (15)
  1. BYETTA [Suspect]
     Dosage: UNK, UNKNOWN
     Route: 065
     Dates: start: 20060314, end: 20060712
  2. PREVACID [Concomitant]
     Dosage: UNK, DAILY (1/D)
  3. METFORMIN HCL [Concomitant]
     Indication: DIABETES MELLITUS
     Dosage: UNK, DAILY (1/D)
  4. TAZTIA XT [Concomitant]
     Indication: HYPERTENSION
     Dosage: UNK, DAILY (1/D)
  5. FUROSEMIDE [Concomitant]
     Indication: FLUID RETENTION
     Dosage: UNK, DAILY (1/D)
  6. METOPROLOL TARTRATE [Concomitant]
     Indication: HYPERTENSION
     Dosage: UNK, DAILY (1/D)
  7. ACETAMINOPHEN [Concomitant]
     Indication: PAIN
     Dosage: UNK, AS NEEDED
  8. ACTOS [Concomitant]
     Dosage: UNK, UNK
  9. DIGITEK [Concomitant]
     Dosage: UNK, UNK
  10. ZYRTEC [Concomitant]
     Dosage: UNK, UNK
  11. COZAAR [Concomitant]
  12. COMBIVENT [Concomitant]
  13. ASPIRIN                                 /SCH/ [Concomitant]
  14. GLIMEPIRIDE [Concomitant]
  15. ADVAIR DISKUS 100/50 [Concomitant]

REACTIONS (8)
  - HYPERTRIGLYCERIDAEMIA [None]
  - PANCREATITIS [None]
  - PANCREATITIS CHRONIC [None]
  - PANCREATITIS HAEMORRHAGIC [None]
  - PANCREATITIS NECROTISING [None]
  - PLEURAL EFFUSION [None]
  - RESPIRATORY FAILURE [None]
  - SEPSIS [None]
